FAERS Safety Report 7432823-9 (Version None)
Quarter: 2011Q2

REPORT INFORMATION
  Report Type: 
  Country: None (occurrence: None)
  Receive Date: 20110422
  Receipt Date: 20110414
  Transmission Date: 20111010
  Serious: Yes (Death, Hospitalization)
  Sender: FDA-Public Use
  Company Number: NL-PERRIGO-11NL003157

PATIENT
  Age: 17 Year
  Sex: Female
  Weight: 55 kg

DRUGS (5)
  1. FENTANYL [Concomitant]
     Indication: TRACHEOSTOMY
     Route: 065
  2. CLARITHROMYCIN [Suspect]
     Indication: PNEUMONIA
     Route: 065
  3. AMOXICILLIN W/CLAVULANIC ACID [Suspect]
     Indication: PNEUMONIA
     Route: 065
  4. ACETAMINOPHEN [Suspect]
     Indication: PRODUCT USED FOR UNKNOWN INDICATION
     Dosage: PRN, ON AVERAGE 40 NMOL/ML/DAY MAX 90 NMOL/ML/DAY
     Route: 054
  5. PROPOFOL [Concomitant]
     Indication: TRACHEOSTOMY
     Route: 065

REACTIONS (8)
  - ABDOMINAL PAIN [None]
  - JAUNDICE [None]
  - VOMITING [None]
  - NAUSEA [None]
  - MULTI-ORGAN FAILURE [None]
  - SHOCK [None]
  - ACUTE HEPATIC FAILURE [None]
  - ALANINE AMINOTRANSFERASE INCREASED [None]
